FAERS Safety Report 5139464-7 (Version None)
Quarter: 2006Q4

REPORT INFORMATION
  Report Type: 
  Country: None (occurrence: None)
  Receive Date: 20061024
  Receipt Date: 20060712
  Transmission Date: 20070319
  Serious: Yes (Hospitalization, Other)
  Sender: FDA-Public Use
  Company Number: 2006069495

PATIENT
  Age: 57 Year
  Sex: Female

DRUGS (1)
  1. BEXTRA [Suspect]
     Dates: start: 20021201, end: 20030101

REACTIONS (5)
  - CARDIOVASCULAR DISORDER [None]
  - CEREBRAL INFARCTION [None]
  - CEREBROVASCULAR ACCIDENT [None]
  - INJURY [None]
  - SYNCOPE [None]
